FAERS Safety Report 10894494 (Version 2)
Quarter: 2015Q3

REPORT INFORMATION
  Report Type: Spontaneous
  Country: US (occurrence: US)
  Receive Date: 20150306
  Receipt Date: 20150806
  Transmission Date: 20151125
  Serious: No
  Sender: FDA-Public Use
  Company Number: US-GLAXOSMITHKLINE-US2015GSK030343

PATIENT
  Sex: Male

DRUGS (1)
  1. VOTRIENT [Suspect]
     Active Substance: PAZOPANIB HYDROCHLORIDE
     Indication: PRODUCT USED FOR UNKNOWN INDICATION
     Dosage: 800 MG, U
     Route: 065

REACTIONS (5)
  - Fatigue [Unknown]
  - Cognitive disorder [Unknown]
  - Constipation [Unknown]
  - Diarrhoea [Unknown]
  - Blood pressure increased [Unknown]
